FAERS Safety Report 4814147-9 (Version None)
Quarter: 2005Q4

REPORT INFORMATION
  Report Type: 
  Country: None (occurrence: None)
  Receive Date: 20051028
  Receipt Date: 20050706
  Transmission Date: 20060501
  Serious: Yes (Other)
  Sender: FDA-Public Use
  Company Number: US-GLAXOSMITHKLINE-A0565339A

PATIENT
  Age: 14 Year
  Sex: Male
  Weight: 67.7 kg

DRUGS (4)
  1. ADVAIR DISKUS 100/50 [Suspect]
     Indication: ASTHMA
     Route: 055
     Dates: start: 20041230, end: 20050425
  2. ALLEGRA [Concomitant]
  3. SINGULAIR [Concomitant]
  4. RHINOCORT [Concomitant]

REACTIONS (1)
  - URTICARIA [None]
